FAERS Safety Report 10974818 (Version 4)
Quarter: 2020Q2

REPORT INFORMATION
  Report Type: Spontaneous
  Country: US (occurrence: US)
  Receive Date: 20150401
  Receipt Date: 20200401
  Transmission Date: 20200713
  Serious: Yes (Other)
  Sender: FDA-Public Use
  Company Number: US-HORIZON-ACT-0015-2014

PATIENT
  Age: 10 Year
  Sex: Female

DRUGS (1)
  1. ACTIMMUNE [Suspect]
     Active Substance: INTERFERON GAMMA-1B
     Indication: CHRONIC GRANULOMATOUS DISEASE
     Dosage: 34 ?G THREE TIMES WEEKLY
     Route: 058
     Dates: start: 201303, end: 201405

REACTIONS (8)
  - Lethargy [Unknown]
  - Condition aggravated [Not Recovered/Not Resolved]
  - Decreased appetite [Unknown]
  - Growth retardation [Not Recovered/Not Resolved]
  - Weight gain poor [Not Recovered/Not Resolved]
  - Influenza like illness [Unknown]
  - Fear of injection [Unknown]
  - Pyrexia [Unknown]
